FAERS Safety Report 12125433 (Version 2)
Quarter: 2016Q4

REPORT INFORMATION
  Report Type: Spontaneous
  Country: US (occurrence: US)
  Receive Date: 20160229
  Receipt Date: 20161017
  Transmission Date: 20170206
  Serious: Yes (Other)
  Sender: FDA-Public Use
  Company Number: US-ABBVIE-15P-163-1470930-00

PATIENT
  Sex: Male

DRUGS (1)
  1. ANDROGEL [Suspect]
     Active Substance: TESTOSTERONE
     Indication: BLOOD TESTOSTERONE DECREASED
     Route: 061
     Dates: start: 20020802, end: 200310

REACTIONS (6)
  - Injury [Unknown]
  - Economic problem [Unknown]
  - Emotional distress [Unknown]
  - Pain [Unknown]
  - Aortic thrombosis [Unknown]
  - Anhedonia [Unknown]
